FAERS Safety Report 8182592-2 (Version None)
Quarter: 2012Q1

REPORT INFORMATION
  Report Type: 
  Country: None (occurrence: None)
  Receive Date: 20120305
  Receipt Date: 20120227
  Transmission Date: 20120608
  Serious: Yes (Other)
  Sender: FDA-Public Use
  Company Number: US-AMGEN-USASP2012012705

PATIENT
  Age: 35 Year
  Sex: Female

DRUGS (1)
  1. ENBREL [Suspect]
     Indication: RHEUMATOID ARTHRITIS
     Dosage: 25 MG, QWK
     Dates: start: 20100101

REACTIONS (10)
  - NERVOUSNESS [None]
  - HEADACHE [None]
  - JAW DISORDER [None]
  - MIGRAINE [None]
  - PAIN IN JAW [None]
  - GAIT DISTURBANCE [None]
  - INJECTION SITE PAIN [None]
  - SPEECH DISORDER [None]
  - NECK PAIN [None]
  - SOMNOLENCE [None]
